FAERS Safety Report 9063223 (Version 3)
Quarter: 2013Q2

REPORT INFORMATION
  Report Type: Spontaneous
  Country: US (occurrence: US)
  Receive Date: 20130213
  Receipt Date: 20130409
  Transmission Date: 20140414
  Serious: Yes (Other)
  Sender: FDA-Public Use
  Company Number: US-GLAXOSMITHKLINE-A1011120A

PATIENT
  Age: 70 Year
  Sex: Female

DRUGS (14)
  1. ADVAIR [Suspect]
     Indication: CHRONIC OBSTRUCTIVE PULMONARY DISEASE
     Dosage: 1PUFF TWICE PER DAY
     Route: 055
     Dates: start: 2009
  2. COMBIVENT [Concomitant]
  3. HYDRALAZINE [Concomitant]
  4. AMLODIPINE [Concomitant]
  5. MICARDIS [Concomitant]
  6. SYNTHROID [Concomitant]
  7. INSULIN [Concomitant]
  8. CLONAZEPAM [Concomitant]
  9. JANUVIA [Concomitant]
  10. SERTRALINE [Concomitant]
  11. FEXOFENADINE [Concomitant]
  12. CENTRUM SILVER [Concomitant]
  13. ASPIRIN LOW DOSE [Concomitant]
  14. OMEGA 3 [Concomitant]

REACTIONS (6)
  - Pharyngitis streptococcal [Not Recovered/Not Resolved]
  - Dyspnoea [Not Recovered/Not Resolved]
  - Chest discomfort [Not Recovered/Not Resolved]
  - Abasia [Not Recovered/Not Resolved]
  - Sensation of heaviness [Not Recovered/Not Resolved]
  - Product quality issue [Unknown]
